FAERS Safety Report 12274233 (Version 1)
Quarter: 2016Q2

REPORT INFORMATION
  Report Type: Spontaneous
  Country: US (occurrence: US)
  Receive Date: 20160415
  Receipt Date: 20160415
  Transmission Date: 20160815
  Serious: No
  Sender: FDA-Public Use
  Company Number: US-ALLERGAN-1509764US

PATIENT
  Sex: Female
  Weight: 47.17 kg

DRUGS (1)
  1. LATISSE [Suspect]
     Active Substance: BIMATOPROST
     Indication: GROWTH OF EYELASHES
     Dosage: 1 APPLICATION PER EYE, QHS
     Dates: start: 20150514, end: 20150517

REACTIONS (5)
  - Visual impairment [Not Recovered/Not Resolved]
  - Wrong technique in product usage process [Unknown]
  - Conjunctivitis [Not Recovered/Not Resolved]
  - Medication residue present [Unknown]
  - Eye discharge [Not Recovered/Not Resolved]
